FAERS Safety Report 8514157-4 (Version None)
Quarter: 2012Q2

REPORT INFORMATION
  Report Type: 
  Country: None (occurrence: None)
  Receive Date: 20120406
  Receipt Date: 20111109
  Transmission Date: 20120825
  Serious: Yes (Life-Threatening)
  Sender: FDA-Public Use
  Company Number: US-CYPR-2011-000092

PATIENT
  Sex: Male
  Weight: 117.9352 kg

DRUGS (10)
  1. PROAIR HFA [Concomitant]
  2. ASPIRIN [Suspect]
     Indication: CORONARY ARTERY DISEASE
     Dosage: (325 MG ORAL)
     Route: 048
     Dates: start: 20100310, end: 20110910
  3. AMBIEN [Concomitant]
  4. ASENAPINE [Concomitant]
  5. BENZTROPINE MESYLATE [Concomitant]
  6. CLOPIDOGREL [Suspect]
     Indication: ANTIPLATELET THERAPY
     Dosage: (75 MG ORAL)
     Route: 048
     Dates: start: 20110523, end: 20110909
  7. CYPHER STENT [Concomitant]
  8. LISINOPRIL [Concomitant]
  9. LOVASTATIN [Concomitant]
  10. METOPROLOL SUCCINATE [Concomitant]

REACTIONS (1)
  - LEUKAEMIA [None]
